FAERS Safety Report 25487990 (Version 3)
Quarter: 2025Q3

REPORT INFORMATION
  Report Type: Spontaneous
  Country: US (occurrence: US)
  Receive Date: 20250627
  Receipt Date: 20250806
  Transmission Date: 20251021
  Serious: Yes (Other)
  Sender: SUNOVION
  Company Number: US-SMPA-2025SPA007058AA

PATIENT
  Age: 67 Year
  Sex: Male

DRUGS (13)
  1. ORGOVYX [Suspect]
     Active Substance: RELUGOLIX
     Indication: Prostate cancer
     Dosage: 120 MG, QD
     Route: 048
  2. AMLODIPINE [Concomitant]
     Active Substance: AMLODIPINE BESYLATE
  3. ASPIRIN [Concomitant]
     Active Substance: ASPIRIN
  4. ATORVASTATIN [Concomitant]
     Active Substance: ATORVASTATIN
  5. AZELASTINE [Concomitant]
     Active Substance: AZELASTINE
     Route: 045
  6. DICLOFENAC [Concomitant]
     Active Substance: DICLOFENAC
  7. HUMULIN NOS [Concomitant]
     Active Substance: INSULIN HUMAN
  8. LATANOPROST [Concomitant]
     Active Substance: LATANOPROST
  9. LISINOPRIL [Concomitant]
     Active Substance: LISINOPRIL
  10. METFORMIN [Concomitant]
     Active Substance: METFORMIN HYDROCHLORIDE
  11. TAMSULOSIN [Concomitant]
     Active Substance: TAMSULOSIN
  12. TRIAMCINOLONE [Concomitant]
     Active Substance: TRIAMCINOLONE
  13. TRULICITY [Concomitant]
     Active Substance: DULAGLUTIDE
     Route: 058

REACTIONS (4)
  - Cardiac flutter [Unknown]
  - Weight decreased [Unknown]
  - Hot flush [Not Recovered/Not Resolved]
  - Headache [Recovered/Resolved]
